FAERS Safety Report 9496995 (Version 1)
Quarter: 2013Q3

REPORT INFORMATION
  Report Type: Spontaneous
  Country: US (occurrence: None)
  Receive Date: 20130903
  Receipt Date: 20130903
  Transmission Date: 20140515
  Serious: Yes (Disabling, Other)
  Sender: FDA-Public Use
  Company Number: None

PATIENT
  Age: 36 Year
  Sex: Male
  Weight: 77.11 kg

DRUGS (1)
  1. FINASTERIDE [Suspect]
     Indication: ANDROGENETIC ALOPECIA
     Dosage: 30 ONCE DAILY TAKEN BY MOUTH
     Route: 048

REACTIONS (4)
  - Anxiety [None]
  - Depression [None]
  - Suicidal ideation [None]
  - Sexual dysfunction [None]
